FAERS Safety Report 5581685-3 (Version None)
Quarter: 2008Q1

REPORT INFORMATION
  Report Type: 
  Country: None (occurrence: None)
  Receive Date: 20080104
  Receipt Date: 20071212
  Transmission Date: 20080703
  Serious: No
  Sender: FDA-Public Use
  Company Number: GB-BAXTER-20638

PATIENT
  Age: 35 Year
  Sex: Female

DRUGS (1)
  1. GAMMAGARD [Suspect]
     Indication: IMMUNODEFICIENCY COMMON VARIABLE
     Dosage: . DOSE UNIT:UNKNOWN
     Route: 065
     Dates: start: 19940131, end: 19940201

REACTIONS (1)
  - HEPATITIS [None]
